FAERS Safety Report 7001090-2 (Version None)
Quarter: 2010Q3

REPORT INFORMATION
  Report Type: 
  Country: None (occurrence: None)
  Receive Date: 20100920
  Receipt Date: 20100910
  Transmission Date: 20110219
  Serious: Yes (Death, Other)
  Sender: FDA-Public Use
  Company Number: IT-GENZYME-CLOF-1001039

PATIENT
  Sex: Female
  Weight: 66 kg

DRUGS (8)
  1. EVOLTRA [Suspect]
     Indication: ACUTE MYELOID LEUKAEMIA
     Dosage: 22.5 MG/M2, QDX5, CONSOLIDATION
     Route: 042
     Dates: start: 20090202, end: 20090205
  2. EVOLTRA [Suspect]
     Dosage: 22.5 MG/M2, QDX5
     Route: 042
     Dates: start: 20081101, end: 20081101
  3. CYTARABINE [Suspect]
     Indication: ACUTE MYELOID LEUKAEMIA
     Dosage: 1 G/M2, QDX5, CONSOLIDATION
     Route: 042
     Dates: start: 20090202, end: 20090205
  4. CYTARABINE [Suspect]
     Dosage: 1 G/M2, QDX5
     Dates: start: 20081101, end: 20081101
  5. MYLOTARG [Suspect]
     Indication: ACUTE MYELOID LEUKAEMIA
     Dosage: 6 MG/M2, ONCE, INDUCTION
     Route: 042
     Dates: start: 20081101, end: 20081101
  6. VFEND [Concomitant]
     Indication: PROPHYLAXIS
     Dosage: 200 MG, BID
     Route: 048
     Dates: start: 20090226
  7. CIPRALEX [Concomitant]
     Indication: PROPHYLAXIS
     Dosage: 10 MG, QD
     Route: 048
     Dates: start: 20090312
  8. LEVOFLOXACIN [Concomitant]
     Indication: PROPHYLAXIS
     Dosage: 800 MG, QD
     Route: 048
     Dates: start: 20090319, end: 20090325

REACTIONS (2)
  - BONE MARROW FAILURE [None]
  - HUMAN HERPESVIRUS 6 INFECTION [None]
